FAERS Safety Report 9850030 (Version 1)
Quarter: 2014Q1

REPORT INFORMATION
  Report Type: Spontaneous
  Country: GB (occurrence: GB)
  Receive Date: 20140128
  Receipt Date: 20140128
  Transmission Date: 20141002
  Serious: Yes (Other)
  Sender: FDA-Public Use
  Company Number: PHFR2014GB000862

PATIENT
  Age: 62 Year
  Sex: Female
  Weight: 70 kg

DRUGS (2)
  1. TERBINAFINE [Suspect]
     Indication: ONYCHOMYCOSIS
     Dosage: 250 MG, UNK
     Route: 048
     Dates: start: 20131230, end: 20140104
  2. AMITRIPTYLINE [Concomitant]
     Dosage: 10 MG, QD AT NIGHT
     Route: 048

REACTIONS (6)
  - Pulse pressure increased [Recovering/Resolving]
  - Arteritis [Recovering/Resolving]
  - Muscle spasms [Recovering/Resolving]
  - Pain of skin [Recovering/Resolving]
  - Pain [Recovering/Resolving]
  - Headache [Recovering/Resolving]
